FAERS Safety Report 7555136-3 (Version None)
Quarter: 2011Q2

REPORT INFORMATION
  Report Type: 
  Country: None (occurrence: None)
  Receive Date: 20110617
  Receipt Date: 20110428
  Transmission Date: 20111010
  Serious: Yes (Other)
  Sender: FDA-Public Use
  Company Number: US-UCBSA-033171

PATIENT
  Sex: Female
  Weight: 67.58 kg

DRUGS (5)
  1. CIMZIA [Suspect]
     Indication: CROHN'S DISEASE
     Dosage: INDUCTION DOSE
     Route: 058
     Dates: start: 20101222
  2. VALTREX [Concomitant]
     Indication: HERPES ZOSTER
     Route: 048
     Dates: start: 20101101
  3. CIMZIA [Suspect]
     Route: 058
     Dates: start: 20110305
  4. VITAMIN B-12 [Concomitant]
     Indication: VITAMIN B12 DEFICIENCY
     Dates: start: 20110131
  5. ACIDOPHILUS [Concomitant]
     Indication: DYSPEPSIA
     Route: 048
     Dates: start: 20101101

REACTIONS (11)
  - HERPES ZOSTER [None]
  - VULVOVAGINAL MYCOTIC INFECTION [None]
  - GASTROOESOPHAGEAL REFLUX DISEASE [None]
  - CHEST PAIN [None]
  - WEIGHT INCREASED [None]
  - FLUID RETENTION [None]
  - ABDOMINAL DISTENSION [None]
  - VAGINITIS BACTERIAL [None]
  - HYPERHIDROSIS [None]
  - SWELLING FACE [None]
  - DIARRHOEA [None]
